FAERS Safety Report 15546864 (Version 2)
Quarter: 2019Q1

REPORT INFORMATION
  Report Type: Other
  Country: CA (occurrence: CA)
  Receive Date: 20181024
  Receipt Date: 20190118
  Transmission Date: 20190417
  Serious: Yes (Other)
  Sender: FDA-Public Use
  Company Number: CA-GLENMARK PHARMACEUTICALS-2018GMK037854

PATIENT

DRUGS (3)
  1. HYDROXYCHLOROQUINE [Suspect]
     Active Substance: HYDROXYCHLOROQUINE
     Indication: ARTHRALGIA
     Dosage: UNK
     Route: 065
  2. URSODEOXYCHOLIC ACID [Suspect]
     Active Substance: URSODIOL
     Indication: PRODUCT USED FOR UNKNOWN INDICATION
     Dosage: 750 MG, OD
     Route: 048
  3. OBETICHOLIC ACID [Suspect]
     Active Substance: OBETICHOLIC ACID
     Indication: PRIMARY BILIARY CHOLANGITIS
     Dosage: 5 MG, QW
     Route: 048

REACTIONS (17)
  - Proctalgia [Unknown]
  - Insomnia [Unknown]
  - Dyspepsia [Unknown]
  - Pruritus [Unknown]
  - Somnolence [Unknown]
  - Thinking abnormal [Unknown]
  - Nausea [Unknown]
  - Back pain [Unknown]
  - Constipation [Unknown]
  - Muscle spasms [Unknown]
  - Fatigue [Unknown]
  - Intentional self-injury [Unknown]
  - Scab [Unknown]
  - Suicidal ideation [Unknown]
  - Abdominal pain upper [Unknown]
  - Anal incontinence [Unknown]
  - Frequent bowel movements [Unknown]
